FAERS Safety Report 13741383 (Version 1)
Quarter: 2017Q3

REPORT INFORMATION
  Report Type: Spontaneous
  Country: CN (occurrence: CN)
  Receive Date: 20170711
  Receipt Date: 20170711
  Transmission Date: 20171127
  Serious: Yes (Death, Life-Threatening, Hospitalization, Other)
  Sender: FDA-Public Use
  Company Number: CN-GLENMARK PHARMACEUTICALS-2017GMK028115

PATIENT
  Age: 24 Year
  Sex: Male

DRUGS (18)
  1. METHYLPREDNISOLONE. [Suspect]
     Active Substance: METHYLPREDNISOLONE
     Indication: TYPE 2 LEPRA REACTION
     Dosage: 60 MG, QD
     Route: 048
     Dates: start: 2013
  2. METHYLPREDNISOLONE. [Suspect]
     Active Substance: METHYLPREDNISOLONE
     Dosage: 30 MG, QD
     Route: 048
  3. CLOFAZIMINE [Concomitant]
     Active Substance: CLOFAZIMINE
     Dosage: 200 MG, QD
     Route: 065
  4. METHYLPREDNISOLONE. [Suspect]
     Active Substance: METHYLPREDNISOLONE
     Dosage: 60-80 MG
     Route: 048
  5. METHYLPREDNISOLONE. [Suspect]
     Active Substance: METHYLPREDNISOLONE
     Dosage: 20 MG, QD
     Route: 048
  6. CLOFAZIMINE [Concomitant]
     Active Substance: CLOFAZIMINE
     Indication: LEPROMATOUS LEPROSY
     Dosage: 300 MG, UNK
     Route: 065
  7. METHYLPREDNISOLONE. [Suspect]
     Active Substance: METHYLPREDNISOLONE
     Dosage: 25 MG, QD
     Route: 048
  8. CLOFAZIMINE [Concomitant]
     Active Substance: CLOFAZIMINE
     Dosage: 50 MG, QD
     Route: 065
  9. LEFLUNOMIDE. [Concomitant]
     Active Substance: LEFLUNOMIDE
     Indication: TYPE 2 LEPRA REACTION
     Dosage: UNK
     Route: 065
  10. MEROPENEM. [Suspect]
     Active Substance: MEROPENEM
     Indication: BRAIN ABSCESS
     Dosage: 6 G, QD
     Route: 065
  11. THALIDOMIDE [Concomitant]
     Active Substance: THALIDOMIDE
     Indication: LEPROMATOUS LEPROSY
     Dosage: 300 MG, QD
     Route: 065
  12. LEVOFLOXACIN. [Suspect]
     Active Substance: LEVOFLOXACIN
     Indication: BRAIN ABSCESS
     Dosage: 400 MG, QD
     Route: 065
  13. CEFTRIAXONE. [Suspect]
     Active Substance: CEFTRIAXONE
     Indication: BRAIN ABSCESS
     Dosage: 4 G, QD
     Route: 065
  14. CLOFAZIMINE [Concomitant]
     Active Substance: CLOFAZIMINE
     Dosage: 100 MG, QD
     Route: 065
  15. CYCLOPHOSPHAMIDE. [Concomitant]
     Active Substance: CYCLOPHOSPHAMIDE
     Indication: TYPE 2 LEPRA REACTION
     Dosage: UNK
     Route: 065
  16. DAPSONE. [Concomitant]
     Active Substance: DAPSONE
     Indication: LEPROMATOUS LEPROSY
     Dosage: 100 MG, QD
     Route: 065
  17. RIFAMPIN. [Concomitant]
     Active Substance: RIFAMPIN
     Indication: LEPROMATOUS LEPROSY
     Dosage: 600 MG, MONTHLY
     Route: 065
  18. HYDROXYCHLOROQUINE [Concomitant]
     Active Substance: HYDROXYCHLOROQUINE
     Indication: TYPE 2 LEPRA REACTION
     Dosage: UNK
     Route: 065

REACTIONS (4)
  - Drug dependence [Fatal]
  - Drug ineffective [Unknown]
  - Type 2 lepra reaction [Fatal]
  - Brain abscess [Fatal]
